FAERS Safety Report 15577677 (Version 1)
Quarter: 2018Q4

REPORT INFORMATION
  Report Type: Spontaneous
  Country: GB (occurrence: GB)
  Receive Date: 20181102
  Receipt Date: 20181102
  Transmission Date: 20190205
  Serious: Yes (Other)
  Sender: FDA-Public Use
  Company Number: GB-AUROBINDO-AUR-APL-2018-053363

PATIENT
  Age: 48 Year
  Sex: Female

DRUGS (2)
  1. TEGRETOL [Suspect]
     Active Substance: CARBAMAZEPINE
     Indication: EPILEPSY
     Dosage: 800 MILLIGRAM, ONCE A DAY (400 MG, BID)
     Route: 048
  2. LEVETIRACETAM FILM-COATED TABLET [Suspect]
     Active Substance: LEVETIRACETAM
     Indication: EPILEPSY
     Dosage: 500 MILLIGRAM, ONCE A DAY (250 MG, BID)
     Route: 065
     Dates: start: 2004

REACTIONS (10)
  - Aggression [Unknown]
  - Anxiety [Unknown]
  - Loss of consciousness [Unknown]
  - Panic attack [Unknown]
  - Abnormal behaviour [Unknown]
  - Palpitations [Unknown]
  - Stress [Unknown]
  - Tremor [Unknown]
  - Tonic convulsion [Unknown]
  - Seizure [Unknown]
